FAERS Safety Report 8561482-7 (Version None)
Quarter: 2012Q3

REPORT INFORMATION
  Report Type: 
  Country: None (occurrence: None)
  Receive Date: 20120802
  Receipt Date: 20120724
  Transmission Date: 20120928
  Serious: Yes (Hospitalization, Other)
  Sender: FDA-Public Use
  Company Number: US-ABBOTT-11P-163-0861064-00

PATIENT
  Sex: Female

DRUGS (1)
  1. HUMIRA [Suspect]
     Indication: PSORIASIS
     Dates: start: 20081106

REACTIONS (8)
  - OOPHORECTOMY [None]
  - RENAL MASS [None]
  - GASTROINTESTINAL DISORDER [None]
  - APPENDICECTOMY [None]
  - LIVER FUNCTION TEST ABNORMAL [None]
  - SMALL INTESTINAL OBSTRUCTION [None]
  - CONSTIPATION [None]
  - CHOLECYSTECTOMY [None]
